FAERS Safety Report 4677380-5 (Version None)
Quarter: 2005Q2

REPORT INFORMATION
  Report Type: 
  Country: None (occurrence: None)
  Receive Date: 20050531
  Receipt Date: 20050405
  Transmission Date: 20051028
  Serious: Yes (Hospitalization)
  Sender: FDA-Public Use
  Company Number: 200512850US

PATIENT
  Sex: Female

DRUGS (1)
  1. DDAVP [Suspect]
     Dosage: DOSE: UNK

REACTIONS (2)
  - HYPERNATRAEMIA [None]
  - PHARMACEUTICAL PRODUCT COMPLAINT [None]
